FAERS Safety Report 12961336 (Version 1)
Quarter: 2016Q4

REPORT INFORMATION
  Report Type: Spontaneous
  Country: FR (occurrence: FR)
  Receive Date: 20161121
  Receipt Date: 20161121
  Transmission Date: 20170207
  Serious: Yes (Life-Threatening, Hospitalization, Other)
  Sender: FDA-Public Use
  Company Number: FR-PFIZER INC-2016534631

PATIENT
  Age: 69 Year
  Sex: Male

DRUGS (9)
  1. DALACINE [Suspect]
     Active Substance: CLINDAMYCIN HYDROCHLORIDE
     Indication: STAPHYLOCOCCAL INFECTION
  2. RIFADINE [Suspect]
     Active Substance: RIFAMPIN
     Indication: DEVICE RELATED INFECTION
     Dosage: 300 MG, 3X/DAY
     Route: 048
     Dates: start: 20161020, end: 20161029
  3. DALACINE [Suspect]
     Active Substance: CLINDAMYCIN HYDROCHLORIDE
     Indication: DEVICE RELATED INFECTION
     Dosage: 600 MG, 3X/DAY
     Route: 048
     Dates: start: 20161020, end: 20161029
  4. DOLIPRANE [Concomitant]
     Active Substance: ACETAMINOPHEN
     Dosage: UNK
     Dates: start: 20161018
  5. VANCOMYCINE MYLAN [Suspect]
     Active Substance: VANCOMYCIN
     Indication: STAPHYLOCOCCAL INFECTION
  6. VANCOMYCINE MYLAN [Suspect]
     Active Substance: VANCOMYCIN
     Indication: DEVICE RELATED INFECTION
     Dosage: 1 G, 2X/DAY
     Route: 041
     Dates: start: 20161018, end: 20161029
  7. RIFADINE [Suspect]
     Active Substance: RIFAMPIN
     Indication: STAPHYLOCOCCAL INFECTION
  8. TOPALGIC [Concomitant]
     Active Substance: TRAMADOL
     Dosage: UNK
     Dates: start: 20161018
  9. LOVENOX [Concomitant]
     Active Substance: ENOXAPARIN SODIUM
     Dosage: UNK
     Dates: start: 20161018

REACTIONS (2)
  - Thrombocytopenia [Recovered/Resolved]
  - Epistaxis [Recovered/Resolved]

NARRATIVE: CASE EVENT DATE: 20161028
